FAERS Safety Report 4831187-4 (Version None)
Quarter: 2005Q4

REPORT INFORMATION
  Report Type: 
  Country: None (occurrence: None)
  Receive Date: 20051116
  Receipt Date: 20051116
  Transmission Date: 20060501
  Serious: Yes (Hospitalization)
  Sender: FDA-Public Use
  Company Number: None

PATIENT
  Age: 22 Year
  Sex: Female

DRUGS (11)
  1. REMODULIN [Suspect]
     Indication: PULMONARY HYPERTENSION
     Dosage: 66 NANOGRAMS/KG/MINUTE   CONTINUOUS   IV DRIP
     Route: 041
     Dates: start: 20050523, end: 20050607
  2. FUROSEMIDE [Concomitant]
  3. SPIRONOLACTONE [Concomitant]
  4. PREDNISONE [Concomitant]
  5. POTASSIUM [Concomitant]
  6. WARFARIN [Concomitant]
  7. LEVOTHYROXINE SODIUM [Concomitant]
  8. DIGOXIN [Concomitant]
  9. AZATHIOPRINE [Concomitant]
  10. HYDROXYCHLOROQUINE SULFATE [Concomitant]
  11. FLOLAN [Concomitant]

REACTIONS (7)
  - CATHETER SEPSIS [None]
  - INTERNATIONAL NORMALISED RATIO INCREASED [None]
  - NAUSEA [None]
  - PYREXIA [None]
  - THROMBOCYTOPENIA [None]
  - VOMITING [None]
  - WHITE BLOOD CELL COUNT INCREASED [None]
